FAERS Safety Report 25531237 (Version 2)
Quarter: 2025Q3

REPORT INFORMATION
  Report Type: Spontaneous
  Country: US (occurrence: US)
  Receive Date: 20250708
  Receipt Date: 20250816
  Transmission Date: 20251020
  Serious: No
  Sender: ALEXION PHARMACEUTICALS
  Company Number: US-ASTRAZENECA-202507USA003735US

PATIENT
  Sex: Female

DRUGS (12)
  1. CRESTOR [Suspect]
     Active Substance: ROSUVASTATIN CALCIUM
     Route: 065
  2. AMOXICILLIN [Concomitant]
     Active Substance: AMOXICILLIN
     Route: 065
  3. BIMATOPROST [Concomitant]
     Active Substance: BIMATOPROST
     Route: 065
  4. CHOLECALCIFEROL [Concomitant]
     Active Substance: CHOLECALCIFEROL
     Route: 065
  5. CLOTRIMAZOLE [Concomitant]
     Active Substance: CLOTRIMAZOLE
     Route: 065
  6. LEFLUNOMIDE [Concomitant]
     Active Substance: LEFLUNOMIDE
     Route: 065
  7. LISINOPRIL [Concomitant]
     Active Substance: LISINOPRIL
     Route: 065
  8. MELOXICAM [Concomitant]
     Active Substance: MELOXICAM
     Route: 065
  9. METFORMIN [Concomitant]
     Active Substance: METFORMIN HYDROCHLORIDE
     Route: 065
  10. PRAVASTATIN [Concomitant]
     Active Substance: PRAVASTATIN
     Route: 065
  11. PREGABALIN [Concomitant]
     Active Substance: PREGABALIN
     Route: 065
  12. SODIUM FLUORIDE [Concomitant]
     Active Substance: SODIUM FLUORIDE
     Route: 065

REACTIONS (1)
  - Gastrointestinal disorder [Unknown]
